FAERS Safety Report 21433269 (Version 1)
Quarter: 2022Q4

REPORT INFORMATION
  Report Type: Spontaneous
  Country: DE (occurrence: DE)
  Receive Date: 20221010
  Receipt Date: 20221010
  Transmission Date: 20230112
  Serious: Yes (Hospitalization, Other)
  Sender: FDA-Public Use
  Company Number: DE-ADRED-07897-01

PATIENT
  Age: 72 Year
  Sex: Male
  Weight: 71 kg

DRUGS (9)
  1. BISOPROLOL [Suspect]
     Active Substance: BISOPROLOL
     Indication: Product used for unknown indication
     Dosage: 5 MILLIGRAM (1-0-1-0)
     Route: 065
  2. ETORICOXIB [Suspect]
     Active Substance: ETORICOXIB
     Indication: Product used for unknown indication
     Dosage: 60 MILLIGRAM (REQUIREMENT)
     Route: 065
  3. ALLOPURINOL [Concomitant]
     Active Substance: ALLOPURINOL
     Indication: Product used for unknown indication
     Dosage: 100 MILLIGRAM (0-0-1-0)
     Route: 065
  4. APIXABAN [Concomitant]
     Active Substance: APIXABAN
     Indication: Product used for unknown indication
     Dosage: 5 MILLIGRAM (1-0-1-0)
     Route: 065
  5. DIGITOXIN [Concomitant]
     Active Substance: DIGITOXIN
     Indication: Product used for unknown indication
     Dosage: 0.07 MILLIGRAM (SCHEME)
     Route: 065
  6. METAMIZOL [Concomitant]
     Active Substance: METAMIZOLE SODIUM
     Indication: Product used for unknown indication
     Dosage: 500 MILLIGRAM (REQUIREMENT)
     Route: 065
  7. RAMIPRIL [Concomitant]
     Active Substance: RAMIPRIL
     Indication: Product used for unknown indication
     Dosage: 5 MILLIGRAM (1-0-0-0)
     Route: 065
  8. SPIRONOLACTONE [Concomitant]
     Active Substance: SPIRONOLACTONE
     Indication: Product used for unknown indication
     Dosage: 25 MILLIGRAM (1-0-0-0)
     Route: 065
  9. TORSEMIDE [Concomitant]
     Active Substance: TORSEMIDE
     Indication: Product used for unknown indication
     Dosage: 5 MILLIGRAM (1-0-0-0)
     Route: 065

REACTIONS (13)
  - Hyperkalaemia [Unknown]
  - Renal impairment [Unknown]
  - Necrosis [Unknown]
  - Systemic infection [Unknown]
  - Peripheral arterial occlusive disease [Unknown]
  - Condition aggravated [Unknown]
  - Musculoskeletal pain [Unknown]
  - General physical health deterioration [Unknown]
  - Hyponatraemia [Unknown]
  - Asthenia [Unknown]
  - Dyspnoea [Unknown]
  - Disorientation [Unknown]
  - Anaemia [Unknown]
